FAERS Safety Report 8008079-5 (Version None)
Quarter: 2011Q4

REPORT INFORMATION
  Report Type: 
  Country: None (occurrence: None)
  Receive Date: 20111227
  Receipt Date: 20111221
  Transmission Date: 20120403
  Serious: Yes (Other)
  Sender: FDA-Public Use
  Company Number: PHEH2011US010519

PATIENT
  Sex: Female

DRUGS (18)
  1. NUVIGIL [Suspect]
     Dosage: 250 MG, UNK
     Dates: start: 20110623
  2. ATORVASTATIN [Concomitant]
     Indication: SLEEP DISORDER
     Dosage: 20 MG, UNK
  3. ASPIRIN [Concomitant]
     Dosage: 325 MG, UNK
  4. LOTRONEX [Concomitant]
     Dosage: UNK UKN, UNK
  5. AMPHETAMINE AND DEXTROAMPHETAMINE SALTS [Concomitant]
     Dosage: 10 MG, UNK
  6. XANAX [Concomitant]
     Indication: BIPOLAR DISORDER
     Dosage: UNK UKN, UNK
  7. DICYCLOMINE [Concomitant]
     Dosage: 10 MG, UNK
  8. LIPITOR [Concomitant]
     Indication: BLOOD CHOLESTEROL
     Dosage: UNK UKN, UNK
  9. TRIAZOLAM [Concomitant]
     Indication: SLEEP DISORDER
     Dosage: 0.25 MG, UNK
  10. ADDERALL 5 [Concomitant]
     Indication: ASTHENIA
     Dosage: 10 MG, BID
  11. CYMBALTA [Concomitant]
     Dosage: UNK UKN, UNK
  12. LITHIUM [Concomitant]
     Indication: BIPOLAR DISORDER
     Dosage: UNK UKN, UNK
  13. LOMOTIL [Concomitant]
     Dosage: UNK UKN, UNK
  14. CITALOPRAM HYDROBROMIDE [Concomitant]
     Dosage: 20 MG, QD
  15. METOCLOPRAMIDE [Concomitant]
     Indication: BIPOLAR DISORDER
     Dosage: 10 MG, UNK
  16. ALPRAZOLAM [Concomitant]
     Dosage: UNK UKN, BID
  17. GILENYA [Suspect]
     Indication: MULTIPLE SCLEROSIS
     Dosage: 0.5 MG, QD
     Route: 048
  18. ZOLPIDEM TARTRATE [Concomitant]
     Dosage: UNK UKN, UNK

REACTIONS (12)
  - MEMORY IMPAIRMENT [None]
  - DYSARTHRIA [None]
  - NEUROPATHY PERIPHERAL [None]
  - BALANCE DISORDER [None]
  - APHAGIA [None]
  - ASTHENIA [None]
  - MULTIPLE SCLEROSIS [None]
  - INSOMNIA [None]
  - ABDOMINAL DISCOMFORT [None]
  - BOWEL MOVEMENT IRREGULARITY [None]
  - WEIGHT DECREASED [None]
  - VISUAL ACUITY REDUCED [None]
